FAERS Safety Report 9472186 (Version 2)
Quarter: 2013Q4

REPORT INFORMATION
  Report Type: Spontaneous
  Country: FR (occurrence: FR)
  Receive Date: 20130823
  Receipt Date: 20131212
  Transmission Date: 20140711
  Serious: Yes (Other)
  Sender: FDA-Public Use
  Company Number: FR-VERTEX PHARMACEUTICALS INC-2013-009001

PATIENT
  Age: 50 Year
  Sex: Male

DRUGS (4)
  1. INCIVO [Suspect]
     Indication: HEPATITIS C
     Dosage: 2 DF, TID, TABLET
     Route: 048
     Dates: start: 20120409
  2. RIBAVIRINE [Suspect]
     Indication: HEPATITIS C
     Dosage: 3 DF, BID
     Route: 048
     Dates: start: 20120409, end: 201303
  3. PEGASYS [Suspect]
     Indication: PRODUCT USED FOR UNKNOWN INDICATION
     Dosage: UNK, QW
     Route: 058
     Dates: start: 20120409, end: 201303
  4. ENTOCORT [Suspect]
     Indication: HEPATITIS C
     Dosage: DOSAGE FORM: UNSPECIFIED, 2 IN THE MORNING AND 3 IN THE EVENING
     Route: 048
     Dates: start: 20120313, end: 201303

REACTIONS (1)
  - Diabetes mellitus [Recovered/Resolved]
